FAERS Safety Report 15359652 (Version 1)
Quarter: 2018Q3

REPORT INFORMATION
  Report Type: Spontaneous
  Country: US (occurrence: US)
  Receive Date: 20180907
  Receipt Date: 20180907
  Transmission Date: 20181010
  Serious: No
  Sender: FDA-Public Use
  Company Number: US-009507513-2009-197535-NL

PATIENT
  Sex: Female

DRUGS (1)
  1. IMPLANON [Suspect]
     Active Substance: ETONOGESTREL
     Indication: CONTRACEPTION
     Dosage: 1 IMPLANT ; UNKNOWN, CONTINUING: NA
     Route: 059
     Dates: start: 2008

REACTIONS (3)
  - Weight increased [Unknown]
  - Complication associated with device [Unknown]
  - Pregnancy with implant contraceptive [Not Recovered/Not Resolved]
